FAERS Safety Report 20083708 (Version 1)
Quarter: 2021Q4

REPORT INFORMATION
  Report Type: Spontaneous
  Country: GB (occurrence: GB)
  Receive Date: 20211118
  Receipt Date: 20211118
  Transmission Date: 20220303
  Serious: Yes (Other)
  Sender: FDA-Public Use
  Company Number: GB-MHRA-ADR 24985927

PATIENT
  Age: 22 Year
  Sex: Female
  Weight: 51.71 kg

DRUGS (2)
  1. TERBINAFINE [Suspect]
     Active Substance: TERBINAFINE
     Indication: Ill-defined disorder
     Dosage: UNK, ONCE A DAY(BID (ON AFFECTED AREA) )
     Route: 061
     Dates: start: 20210311, end: 20210320
  2. CLOBETASONE BUTYRATE [Concomitant]
     Active Substance: CLOBETASONE BUTYRATE
     Indication: Ill-defined disorder
     Dosage: UNK
     Route: 065

REACTIONS (4)
  - Chest discomfort [Not Recovered/Not Resolved]
  - Rash [Not Recovered/Not Resolved]
  - Urticaria [Not Recovered/Not Resolved]
  - Swelling face [Not Recovered/Not Resolved]

NARRATIVE: CASE EVENT DATE: 20210316
